FAERS Safety Report 5140484-7 (Version None)
Quarter: 2006Q4

REPORT INFORMATION
  Report Type: 
  Country: None (occurrence: None)
  Receive Date: 20061031
  Receipt Date: 20061023
  Transmission Date: 20070319
  Serious: Yes (Hospitalization, Disabling)
  Sender: FDA-Public Use
  Company Number: 2006UW20498

PATIENT
  Sex: Female

DRUGS (1)
  1. SENSORCAINE [Suspect]

REACTIONS (10)
  - BLISTER [None]
  - FOOT DEFORMITY [None]
  - INCISION SITE ERYTHEMA [None]
  - PAIN [None]
  - POST PROCEDURAL COMPLICATION [None]
  - POST PROCEDURAL HAEMATOMA [None]
  - PROCEDURAL PAIN [None]
  - SKIN DISCOLOURATION [None]
  - SWELLING [None]
  - TRANSPLANT [None]
